FAERS Safety Report 13165152 (Version 1)
Quarter: 2017Q1

REPORT INFORMATION
  Report Type: Spontaneous
  Country: US (occurrence: US)
  Receive Date: 20170130
  Receipt Date: 20170130
  Transmission Date: 20170428
  Serious: No
  Sender: FDA-Public Use
  Company Number: US-ALLERGAN-1674090US

PATIENT
  Sex: Female

DRUGS (2)
  1. GENERESS FE [Suspect]
     Active Substance: ETHINYL ESTRADIOL\FERROUS FUMARATE\NORETHINDRONE
     Indication: CONTRACEPTION
     Dosage: UNK
     Route: 048
  2. VIIBRYD [Concomitant]
     Active Substance: VILAZODONE HYDROCHLORIDE
     Indication: ANXIETY

REACTIONS (2)
  - Menorrhagia [Unknown]
  - Drug ineffective [Unknown]
